FAERS Safety Report 6879446-8 (Version None)
Quarter: 2010Q3

REPORT INFORMATION
  Report Type: 
  Country: None (occurrence: None)
  Receive Date: 20100728
  Receipt Date: 20100716
  Transmission Date: 20110219
  Serious: Yes (Other)
  Sender: FDA-Public Use
  Company Number: PHFR2010GB00650

PATIENT
  Sex: Female
  Weight: 8.1 kg

DRUGS (2)
  1. NEORAL [Suspect]
     Indication: LYMPHOHISTIOCYTOSIS
     Dosage: 12 MG, UNK
     Route: 048
  2. NEORAL [Suspect]
     Dosage: UNK
     Route: 042

REACTIONS (2)
  - BONE MARROW TRANSPLANT [None]
  - DRUG LEVEL FLUCTUATING [None]
